FAERS Safety Report 4911355-3 (Version None)
Quarter: 2006Q1

REPORT INFORMATION
  Report Type: 
  Country: None (occurrence: None)
  Receive Date: 20060207
  Receipt Date: 20060130
  Transmission Date: 20060701
  Serious: Yes (Other)
  Sender: FDA-Public Use
  Company Number: 2006BH001795

PATIENT
  Sex: Male

DRUGS (1)
  1. IGIV GENERIC [Suspect]
     Indication: IDIOPATHIC THROMBOCYTOPENIC PURPURA
     Dosage: UNKNOWN; UNK; IV
     Route: 042

REACTIONS (3)
  - DRUG HYPERSENSITIVITY [None]
  - MENINGITIS ASEPTIC [None]
  - THERAPEUTIC RESPONSE DECREASED [None]
